FAERS Safety Report 13596069 (Version 1)
Quarter: 2017Q2

REPORT INFORMATION
  Report Type: Spontaneous
  Country: US (occurrence: US)
  Receive Date: 20170531
  Receipt Date: 20170531
  Transmission Date: 20170830
  Serious: No
  Sender: FDA-Public Use
  Company Number: US-JNJFOC-20170310694

PATIENT
  Age: 86 Year
  Sex: Female
  Weight: 83.92 kg

DRUGS (3)
  1. TYLENOL 8 HR ARTHRITIS PAIN [Suspect]
     Active Substance: ACETAMINOPHEN
     Indication: ARTHRALGIA
     Dosage: 1-2 DAY
     Route: 048
     Dates: end: 20170308
  2. TELMISARTAN. [Concomitant]
     Active Substance: TELMISARTAN
     Indication: LABILE BLOOD PRESSURE
     Dosage: 6 MONTHS
     Route: 065
  3. TYLENOL 8 HR ARTHRITIS PAIN [Suspect]
     Active Substance: ACETAMINOPHEN
     Indication: ARTHRALGIA
     Route: 048

REACTIONS (2)
  - Blood pressure abnormal [Recovered/Resolved]
  - Inappropriate schedule of drug administration [Recovered/Resolved]
